FAERS Safety Report 6610766-8 (Version None)
Quarter: 2010Q1

REPORT INFORMATION
  Report Type: 
  Country: None (occurrence: None)
  Receive Date: 20100302
  Receipt Date: 20100218
  Transmission Date: 20100710
  Serious: Yes (Hospitalization)
  Sender: FDA-Public Use
  Company Number: B0631701A

PATIENT
  Age: 78 Year
  Sex: Male

DRUGS (2)
  1. VALTREX [Suspect]
     Indication: HERPES ZOSTER
     Dosage: 1000MG THREE TIMES PER DAY
     Route: 048
  2. ACYCLOVIR [Concomitant]
     Indication: HERPES ZOSTER
     Route: 042

REACTIONS (1)
  - PSYCHIATRIC SYMPTOM [None]
